FAERS Safety Report 9641283 (Version 1)
Quarter: 2013Q4

REPORT INFORMATION
  Report Type: Spontaneous
  Country: FR (occurrence: FR)
  Receive Date: 20131023
  Receipt Date: 20131023
  Transmission Date: 20140711
  Serious: Yes (Other)
  Sender: FDA-Public Use
  Company Number: FR-B.I. PHARMACEUTICALS,INC./RIDGEFIELD-2013-FF-02548FF

PATIENT
  Age: 71 Year
  Sex: Male

DRUGS (3)
  1. PRADAXA [Suspect]
     Indication: ATRIAL FIBRILLATION
     Dosage: 220 MG
     Route: 048
     Dates: start: 201302, end: 201308
  2. ALLOPURINOL [Concomitant]
  3. FLOXYFRAL [Concomitant]

REACTIONS (3)
  - Transient ischaemic attack [Recovered/Resolved]
  - Cerebellar syndrome [Recovered/Resolved]
  - Fall [Recovered/Resolved]
